FAERS Safety Report 21871583 (Version 2)
Quarter: 2023Q1

REPORT INFORMATION
  Report Type: Spontaneous
  Country: US (occurrence: US)
  Receive Date: 20230117
  Receipt Date: 20230118
  Transmission Date: 20230418
  Serious: Yes (Other)
  Sender: FDA-Public Use
  Company Number: US-PFIZER INC-202300017980

PATIENT
  Age: 1 Year
  Sex: Male
  Weight: 9.9 kg

DRUGS (2)
  1. ZOSYN [Suspect]
     Active Substance: PIPERACILLIN SODIUM\TAZOBACTAM SODIUM
     Indication: Antibiotic prophylaxis
     Dosage: 67.5 MG/ML
     Route: 042
  2. ZOSYN [Suspect]
     Active Substance: PIPERACILLIN SODIUM\TAZOBACTAM SODIUM
     Dosage: 1181.25 MG, 3X/DAY (EVERY 8 HOURS)
     Route: 042

REACTIONS (2)
  - Injection site extravasation [Unknown]
  - Plastic surgery [Unknown]

NARRATIVE: CASE EVENT DATE: 20221224
